FAERS Safety Report 9261682 (Version 2)
Quarter: 2013Q2

REPORT INFORMATION
  Report Type: Spontaneous
  Country: FR (occurrence: FR)
  Receive Date: 20130429
  Receipt Date: 20130618
  Transmission Date: 20140414
  Serious: Yes (Other)
  Sender: FDA-Public Use
  Company Number: FR-BAUSCH-BL-2013-002298

PATIENT
  Sex: Male

DRUGS (4)
  1. YELLOX 0.9 MG/ML EYE DROPS, SOLUTION [Suspect]
     Indication: POSTOPERATIVE CARE
     Route: 047
     Dates: start: 20130404, end: 20130419
  2. YELLOX 0.9 MG/ML EYE DROPS, SOLUTION [Suspect]
     Indication: CATARACT OPERATION
  3. CHIBROCADRON [Suspect]
     Indication: POSTOPERATIVE CARE
     Route: 047
     Dates: start: 20130404, end: 20130419
  4. CHIBROCADRON [Suspect]
     Indication: CATARACT OPERATION
     Route: 047
     Dates: start: 20130304, end: 20130319

REACTIONS (1)
  - Cystoid macular oedema [Recovered/Resolved]
